FAERS Safety Report 10191093 (Version 1)
Quarter: 2014Q2

REPORT INFORMATION
  Report Type: Spontaneous
  Country: US (occurrence: US)
  Receive Date: 20140523
  Receipt Date: 20140523
  Transmission Date: 20141212
  Serious: No
  Sender: FDA-Public Use
  Company Number: US-BAYER-2014-065137

PATIENT
  Age: 57 Year
  Sex: Female
  Weight: 77.19 kg

DRUGS (17)
  1. AVELOX [Suspect]
     Indication: PRODUCT USED FOR UNKNOWN INDICATION
     Dosage: UNK
  2. XOPENEX [Concomitant]
     Dosage: 125 MG, TID
  3. ASPIRIN [Concomitant]
     Dosage: 81 MG, QD
  4. BUMEX [Concomitant]
     Dosage: 1 MG, BID
  5. CALTRATE + D [CALCIUM,VITAMIN D NOS] [Concomitant]
     Dosage: UNK UNK, QD
  6. COREG [Concomitant]
     Dosage: 6.25 MG, UNK
  7. NEURONTIN [Concomitant]
     Dosage: 600 MG, UNK
  8. NITROGLYCERIN [Concomitant]
     Indication: CHEST PAIN
     Dosage: 4 MG, PRN
  9. PLAQUENIL [Concomitant]
     Dosage: 200 MG, QD
  10. PROTONIX [Concomitant]
     Dosage: 40 MG, BID
  11. SINGULAIR [Concomitant]
     Dosage: 10 MG, QD
  12. SYNTHROID [Concomitant]
     Dosage: 100 ?G, QD
  13. VITAMIN D3 [Concomitant]
     Dosage: UNK UNK, QD
  14. OMEGA 3 [Concomitant]
     Dosage: UNK UNK, QD
  15. CARDIZEM CD [Concomitant]
     Dosage: UNK UNK, QD
  16. POTASSIUM CHLORIDE [Concomitant]
     Dosage: 15 MEQ, BID
  17. DULERA [Concomitant]
     Dosage: UNK UNK, TID

REACTIONS (2)
  - Hypersensitivity [None]
  - Urticaria [None]
